FAERS Safety Report 7693981-4 (Version None)
Quarter: 2011Q3

REPORT INFORMATION
  Report Type: 
  Country: None (occurrence: None)
  Receive Date: 20110819
  Receipt Date: 20110816
  Transmission Date: 20111222
  Serious: Yes (Life-Threatening, Other)
  Sender: FDA-Public Use
  Company Number: US-SANOFI-AVENTIS-2011SA048977

PATIENT
  Age: 82 Year
  Sex: Female

DRUGS (13)
  1. KLOR-CON [Concomitant]
     Dates: start: 20090911
  2. ARICEPT [Concomitant]
     Dates: start: 20090911
  3. MACRODANTIN [Concomitant]
     Dates: start: 20110330, end: 20110505
  4. MULTAQ [Suspect]
     Indication: ATRIAL FIBRILLATION
     Route: 048
     Dates: start: 20100205, end: 20110505
  5. METOPROLOL [Concomitant]
     Dates: start: 20090911
  6. ASPIRIN [Concomitant]
     Dates: start: 20090911
  7. NAMENDA [Concomitant]
     Dates: start: 20090911
  8. MIRTAZAPINE [Concomitant]
     Dates: start: 20090911
  9. MULTAQ [Suspect]
     Indication: VENTRICULAR TACHYCARDIA
     Route: 048
     Dates: start: 20100205, end: 20110505
  10. IMDUR [Concomitant]
     Dates: start: 20091218
  11. OMEPRAZOLE [Concomitant]
     Dates: start: 20100223
  12. PRAVASTATIN [Concomitant]
     Dates: start: 20091104
  13. MIRALAX [Concomitant]
     Dosage: 1 CAPFUL (17GM) QOD
     Dates: start: 20100720

REACTIONS (3)
  - VENTRICULAR TACHYCARDIA [None]
  - OFF LABEL USE [None]
  - ATRIAL FIBRILLATION [None]
